FAERS Safety Report 25774739 (Version 1)
Quarter: 2025Q3

REPORT INFORMATION
  Report Type: Spontaneous
  Country: US (occurrence: US)
  Receive Date: 20250908
  Receipt Date: 20250908
  Transmission Date: 20251021
  Serious: Yes (Death, Other)
  Sender: TAIHO ONCOLOGY INC
  Company Number: US-TAIHOP-2025-009505

PATIENT
  Age: 85 Year
  Sex: Male

DRUGS (1)
  1. LONSURF [Suspect]
     Active Substance: TIPIRACIL HYDROCHLORIDE\TRIFLURIDINE
     Indication: Metastases to bone
     Dosage: FORM STRENGTH: 15 AND 20MG?CYCLE UNKNOWN
     Route: 048

REACTIONS (9)
  - Disease progression [Fatal]
  - Acute respiratory failure [Unknown]
  - Thrombocytopenia [Unknown]
  - Hypertensive emergency [Unknown]
  - Acute myocardial infarction [Unknown]
  - Atrial fibrillation [Unknown]
  - Urinary retention [Unknown]
  - Hypothyroidism [Unknown]
  - Product use in unapproved indication [Unknown]
